FAERS Safety Report 10975300 (Version 1)
Quarter: 2015Q2

REPORT INFORMATION
  Report Type: Spontaneous
  Country: DE (occurrence: DE)
  Receive Date: 20150401
  Receipt Date: 20150401
  Transmission Date: 20150821
  Serious: Yes (Disabling)
  Sender: FDA-Public Use
  Company Number: DE-ASTRAZENECA-2015SE28581

PATIENT
  Age: 714 Month
  Sex: Male
  Weight: 110 kg

DRUGS (7)
  1. VOCADO HCT [Concomitant]
     Active Substance: AMLODIPINE BESYLATE\HYDROCHLOROTHIAZIDE\OLMESARTAN MEDOXOMIL
  2. SIMVASTATIN. [Concomitant]
     Active Substance: SIMVASTATIN
  3. TORASEMID [Concomitant]
     Active Substance: TORSEMIDE
  4. XIGDUO XR [Suspect]
     Active Substance: DAPAGLIFLOZIN PROPANEDIOL\METFORMIN HYDROCHLORIDE
     Dosage: 5/1000, TWO TIMES A DAY
     Route: 048
     Dates: start: 20140902
  5. HUMALOG KWIKPEN [Concomitant]
     Active Substance: INSULIN LISPRO
  6. NEBIVOLOL ACTAVIS [Concomitant]
     Active Substance: NEBIVOLOL
     Route: 048
     Dates: start: 201401
  7. LEVEMIR [Concomitant]
     Active Substance: INSULIN DETEMIR

REACTIONS (2)
  - Fungal infection [Not Recovered/Not Resolved]
  - Pruritus generalised [Not Recovered/Not Resolved]

NARRATIVE: CASE EVENT DATE: 201501
